FAERS Safety Report 6580585-X (Version None)
Quarter: 2010Q1

REPORT INFORMATION
  Report Type: 
  Country: None (occurrence: None)
  Receive Date: 20100212
  Receipt Date: 20100201
  Transmission Date: 20100710
  Serious: Yes (Other)
  Sender: FDA-Public Use
  Company Number: PHEH2010US01786

PATIENT
  Age: 60 Year
  Sex: Female
  Weight: 68.934 kg

DRUGS (4)
  1. ZOMETA [Suspect]
     Indication: METASTASES TO BONE
     Dosage: 4 MG, UNK
     Route: 042
     Dates: start: 20100105
  2. AUGMENTIN '125' [Concomitant]
     Dosage: UNK
     Dates: start: 20100109
  3. XELODA [Concomitant]
  4. TYKERB [Concomitant]

REACTIONS (2)
  - INFUSION SITE INFLAMMATION [None]
  - INFUSION SITE NECROSIS [None]
